FAERS Safety Report 16433094 (Version 1)
Quarter: 2019Q2

REPORT INFORMATION
  Report Type: Spontaneous
  Country: US (occurrence: US)
  Receive Date: 20190614
  Receipt Date: 20190614
  Transmission Date: 20190711
  Serious: No
  Sender: FDA-Public Use
  Company Number: US-JNJFOC-20170126983

PATIENT
  Sex: Male

DRUGS (6)
  1. FISH OIL W/TOCOPHEROL [Concomitant]
     Active Substance: FISH OIL\TOCOPHEROL
  2. VITAMIN D [Concomitant]
     Active Substance: VITAMIN D NOS
  3. LOPERAMIDE [Concomitant]
     Active Substance: LOPERAMIDE
  4. ELIQUIS [Concomitant]
     Active Substance: APIXABAN
  5. IMBRUVICA [Suspect]
     Active Substance: IBRUTINIB
     Indication: PRODUCT USED FOR UNKNOWN INDICATION
     Route: 048
     Dates: start: 20151125
  6. OMEPRAZOLE. [Concomitant]
     Active Substance: OMEPRAZOLE

REACTIONS (1)
  - Adverse drug reaction [Unknown]
